FAERS Safety Report 7694048-1 (Version None)
Quarter: 2011Q3

REPORT INFORMATION
  Report Type: 
  Country: None (occurrence: None)
  Receive Date: 20110819
  Receipt Date: 20110809
  Transmission Date: 20111222
  Serious: Yes (Other)
  Sender: FDA-Public Use
  Company Number: AU-JNJFOC-20110807871

PATIENT
  Sex: Male

DRUGS (6)
  1. STELARA [Suspect]
     Route: 058
     Dates: start: 20100624
  2. STELARA [Suspect]
     Route: 058
     Dates: start: 20091211
  3. STELARA [Suspect]
     Route: 058
     Dates: start: 20110819
  4. STELARA [Suspect]
     Route: 058
     Dates: start: 20100917
  5. STELARA [Suspect]
     Indication: PSORIASIS
     Route: 058
     Dates: start: 20101110
  6. STELARA [Suspect]
     Route: 058
     Dates: start: 20110303

REACTIONS (3)
  - TIBIA FRACTURE [None]
  - FATIGUE [None]
  - CONDITION AGGRAVATED [None]
